FAERS Safety Report 6407011-5 (Version None)
Quarter: 2009Q4

REPORT INFORMATION
  Report Type: 
  Country: None (occurrence: None)
  Receive Date: 20091020
  Receipt Date: 20091007
  Transmission Date: 20100525
  Serious: Yes (Other)
  Sender: FDA-Public Use
  Company Number: PHHY2009JP42114

PATIENT
  Sex: Male

DRUGS (2)
  1. TEGRETOL [Suspect]
     Indication: EPILEPSY
     Dosage: UNK
  2. ISONIAZID [Interacting]

REACTIONS (4)
  - ALTERED STATE OF CONSCIOUSNESS [None]
  - DRUG INTERACTION [None]
  - DRUG TOXICITY [None]
  - LIVER DISORDER [None]
